FAERS Safety Report 14337377 (Version 1)
Quarter: 2017Q4

REPORT INFORMATION
  Report Type: Spontaneous
  Country: CA (occurrence: CA)
  Receive Date: 20171229
  Receipt Date: 20171229
  Transmission Date: 20180321
  Serious: Yes (Life-Threatening)
  Sender: FDA-Public Use
  Company Number: CA-JNJFOC-20171236054

PATIENT
  Age: 41 Year
  Sex: Female
  Weight: 94 kg

DRUGS (15)
  1. INVOKANA [Suspect]
     Active Substance: CANAGLIFLOZIN
     Indication: DIABETES MELLITUS
     Route: 048
  2. SOMATULIN [Concomitant]
     Active Substance: LANREOTIDE ACETATE
     Dosage: EXTENDED RELEASE
     Route: 065
  3. LIPITOR [Concomitant]
     Active Substance: ATORVASTATIN CALCIUM
     Route: 065
  4. SYNTHROID [Concomitant]
     Active Substance: LEVOTHYROXINE SODIUM
     Route: 065
  5. VICTOZA [Concomitant]
     Active Substance: LIRAGLUTIDE
     Route: 058
  6. NYSTATIN. [Concomitant]
     Active Substance: NYSTATIN
     Route: 065
  7. METFORMIN [Concomitant]
     Active Substance: METFORMIN HYDROCHLORIDE
     Route: 065
  8. ELAVIL [Concomitant]
     Active Substance: AMITRIPTYLINE HYDROCHLORIDE
     Route: 065
  9. HUMALOG [Concomitant]
     Active Substance: INSULIN LISPRO
     Route: 065
  10. VITAMIN D [Concomitant]
     Active Substance: CHOLECALCIFEROL
     Route: 065
  11. CEFZIL [Concomitant]
     Active Substance: CEFPROZIL
     Route: 065
  12. VICTOZA [Concomitant]
     Active Substance: LIRAGLUTIDE
     Route: 058
  13. DEXAMETHASONE. [Concomitant]
     Active Substance: DEXAMETHASONE
     Route: 065
  14. LEVEMIR [Concomitant]
     Active Substance: INSULIN DETEMIR
     Route: 058
  15. SOMAVERT [Concomitant]
     Active Substance: PEGVISOMANT
     Dosage: POWDER FOR SOLUTION
     Route: 058

REACTIONS (1)
  - Ketoacidosis [Recovered/Resolved]
